FAERS Safety Report 13926494 (Version 1)
Quarter: 2017Q3

REPORT INFORMATION
  Report Type: Spontaneous
  Country: US (occurrence: None)
  Receive Date: 20170831
  Receipt Date: 20170831
  Transmission Date: 20171127
  Serious: Yes (Hospitalization)
  Sender: FDA-Public Use
  Company Number: None

PATIENT
  Age: 68 Year
  Sex: Female
  Weight: 54 kg

DRUGS (2)
  1. ERBITUX [Suspect]
     Active Substance: CETUXIMAB
     Dates: end: 20170807
  2. CAMPTOSAR [Suspect]
     Active Substance: IRINOTECAN HYDROCHLORIDE
     Dates: end: 20170807

REACTIONS (8)
  - Asthenia [None]
  - Diarrhoea [None]
  - Chest pain [None]
  - Nausea [None]
  - Vomiting [None]
  - Hypophagia [None]
  - Dyspnoea exertional [None]
  - Flatulence [None]

NARRATIVE: CASE EVENT DATE: 20170809
